FAERS Safety Report 16958901 (Version 1)
Quarter: 2019Q4

REPORT INFORMATION
  Report Type: Spontaneous
  Country: IN (occurrence: IN)
  Receive Date: 20191024
  Receipt Date: 20191024
  Transmission Date: 20200122
  Serious: Yes (Death)
  Sender: FDA-Public Use
  Company Number: IN-ALLERGAN-1942808US

PATIENT

DRUGS (4)
  1. CEFTAZIDIME;AVIBACTAM - BP [Suspect]
     Active Substance: AVIBACTAM SODIUM\CEFTAZIDIME
     Indication: BILIARY TRACT DISORDER
     Route: 065
  2. COLISTIN [Suspect]
     Active Substance: COLISTIN
     Indication: BILIARY TRACT DISORDER
     Route: 065
  3. CEFTAZIDIME;AVIBACTAM - BP [Suspect]
     Active Substance: AVIBACTAM SODIUM\CEFTAZIDIME
     Indication: LIVER TRANSPLANT
  4. COLISTIN [Suspect]
     Active Substance: COLISTIN
     Indication: LIVER TRANSPLANT

REACTIONS (1)
  - Death [Fatal]
